FAERS Safety Report 5113825-4 (Version None)
Quarter: 2006Q3

REPORT INFORMATION
  Report Type: 
  Country: None (occurrence: None)
  Receive Date: 20060921
  Receipt Date: 20060914
  Transmission Date: 20061208
  Serious: Yes (Hospitalization)
  Sender: FDA-Public Use
  Company Number: 06-NIP00141

PATIENT
  Age: 70 Year
  Sex: Male
  Weight: 90 kg

DRUGS (8)
  1. NIPENT [Suspect]
     Indication: CHRONIC LYMPHOCYTIC LEUKAEMIA
     Dosage: 0.1905 MG/M2 (4 MG/M2, 1 IN 21 D), INTRAVENOUS
     Route: 042
     Dates: start: 20060501, end: 20060501
  2. RITUXAN [Suspect]
     Indication: CHRONIC LYMPHOCYTIC LEUKAEMIA
     Dosage: (375 MG/M2), INTRAVENOUS
     Route: 042
     Dates: start: 20060501, end: 20060505
  3. CYCLOPHOSPHAMIDE [Suspect]
     Indication: CHRONIC LYMPHOCYTIC LEUKAEMIA
     Dosage: 28.5714 MG/M2 (600 MG/M2, 1 IN 21 D), INTRAVENOUS
     Route: 042
     Dates: start: 20060501, end: 20060501
  4. ACYCLORVIR (ACICLOVIR (ACICLOVIR) [Concomitant]
  5. ALLOPURINOL (ALLOPURINOL) (ALLOPURINOL) [Concomitant]
  6. BACTRIM (SULFAMETHOXAZOLE, TRIMETHOPRIM) (SULFAMETHOXAZOLE, TRIMETHOPR [Concomitant]
  7. LASIC (FUROSEMIDE) (FUROSEMIDE) [Concomitant]
  8. LASIX [Concomitant]

REACTIONS (2)
  - RENAL FAILURE [None]
  - TUMOUR LYSIS SYNDROME [None]
